FAERS Safety Report 23691597 (Version 1)
Quarter: 2024Q2

REPORT INFORMATION
  Report Type: Spontaneous
  Country: CN (occurrence: CN)
  Receive Date: 20240401
  Receipt Date: 20240401
  Transmission Date: 20240716
  Serious: Yes (Death)
  Sender: FDA-Public Use
  Company Number: CN-SHANGHAI JUNSHI BIOSCIENCES CO., LTD.-CN2024009636

PATIENT

DRUGS (2)
  1. TORIPALIMAB [Suspect]
     Active Substance: TORIPALIMAB
     Indication: Hepatocellular carcinoma
     Dosage: 240 MG, Q3W
     Route: 041
  2. DONAFENIB [Concomitant]
     Indication: Hepatocellular carcinoma
     Dosage: 200 MG, BID, CONTINUE TREATMENT FOR 3 WEEKS
     Route: 048

REACTIONS (3)
  - Hypertension [Fatal]
  - Cerebral haemorrhage [Fatal]
  - Off label use [Unknown]
